FAERS Safety Report 21228191 (Version 1)
Quarter: 2022Q3

REPORT INFORMATION
  Report Type: Spontaneous
  Country: US (occurrence: US)
  Receive Date: 20220818
  Receipt Date: 20220818
  Transmission Date: 20221027
  Serious: No
  Sender: FDA-Public Use
  Company Number: US-BEH-2022148564

PATIENT
  Sex: Female

DRUGS (14)
  1. HIZENTRA [Suspect]
     Active Substance: HUMAN IMMUNOGLOBULIN G
     Indication: Immunodeficiency
     Dosage: 15 GRAM, QOW
     Route: 058
  2. CYANOCOBALAMIN [Concomitant]
     Active Substance: CYANOCOBALAMIN
  3. AMITRIPTYLINE [Concomitant]
     Active Substance: AMITRIPTYLINE
  4. PENTOXIFYLLINE [Concomitant]
     Active Substance: PENTOXIFYLLINE
  5. METFORMIN HYDROCHLORIDE [Concomitant]
     Active Substance: METFORMIN HYDROCHLORIDE
  6. POTASSIUM [Concomitant]
     Active Substance: POTASSIUM
  7. FUROSEMIDE [Concomitant]
     Active Substance: FUROSEMIDE
  8. LINZESS [Concomitant]
     Active Substance: LINACLOTIDE
  9. AMLODIPINE [Concomitant]
     Active Substance: AMLODIPINE BESYLATE
  10. AMOXICILLIN\CLAVULANIC ACID [Concomitant]
     Active Substance: AMOXICILLIN\CLAVULANIC ACID
  11. CLONAZEPAM [Concomitant]
     Active Substance: CLONAZEPAM
  12. ECOTRIN [Concomitant]
     Active Substance: ASPIRIN
  13. LISINOPRIL [Concomitant]
     Active Substance: LISINOPRIL
  14. METOPROLOL [Concomitant]
     Active Substance: METOPROLOL

REACTIONS (2)
  - Pruritus [Recovered/Resolved]
  - Decreased activity [Recovered/Resolved]
